FAERS Safety Report 20680477 (Version 1)
Quarter: 2022Q2

REPORT INFORMATION
  Report Type: Spontaneous
  Country: US (occurrence: None)
  Receive Date: 20220405
  Receipt Date: 20220405
  Transmission Date: 20220720
  Serious: Yes (Hospitalization)
  Sender: FDA-Public Use
  Company Number: None

PATIENT
  Sex: Male
  Weight: 22.7 kg

DRUGS (2)
  1. LAPINE T-LYMPHOCYTE IMMUNE GLOBULIN [Suspect]
     Active Substance: LAPINE T-LYMPHOCYTE IMMUNE GLOBULIN
     Dates: end: 20220312
  2. FLUDARABINE PHOSPHATE [Suspect]
     Active Substance: FLUDARABINE PHOSPHATE
     Dates: end: 20220315

REACTIONS (27)
  - Clostridium difficile colitis [None]
  - Anal injury [None]
  - Hypertransaminasaemia [None]
  - Stem cell transplant [None]
  - Transplant failure [None]
  - Cytokine release syndrome [None]
  - Hepatic enzyme increased [None]
  - Coagulation test abnormal [None]
  - Gamma-glutamyltransferase increased [None]
  - Blood bilirubin increased [None]
  - Venoocclusive disease [None]
  - Hepatic function abnormal [None]
  - Ascites [None]
  - Oxygen saturation decreased [None]
  - Pleural effusion [None]
  - Hypertension [None]
  - Acute respiratory failure [None]
  - Pulmonary oedema [None]
  - Weight increased [None]
  - Fluid retention [None]
  - Hepatitis A virus test positive [None]
  - Epstein-Barr virus test positive [None]
  - Cytopenia [None]
  - Haemoglobin decreased [None]
  - Thrombocytopenia [None]
  - Hepatic encephalopathy [None]
  - Urinary retention [None]

NARRATIVE: CASE EVENT DATE: 20220328
